FAERS Safety Report 20807556 (Version 1)
Quarter: 2022Q2

REPORT INFORMATION
  Report Type: Spontaneous
  Country: FR (occurrence: FR)
  Receive Date: 20220510
  Receipt Date: 20220510
  Transmission Date: 20220721
  Serious: Yes (Hospitalization)
  Sender: FDA-Public Use
  Company Number: None

PATIENT
  Age: 75 Year
  Sex: Female
  Weight: 74 kg

DRUGS (1)
  1. GENTAMICIN [Suspect]
     Active Substance: GENTAMICIN
     Indication: Device related infection
     Dosage: 1 TOTAL
     Route: 042
     Dates: start: 20220410, end: 20220410

REACTIONS (1)
  - Hepatitis [Recovered/Resolved with Sequelae]

NARRATIVE: CASE EVENT DATE: 20220412
